FAERS Safety Report 8798759 (Version 2)
Quarter: 2012Q4

REPORT INFORMATION
  Report Type: 
  Country: US (occurrence: US)
  Receive Date: 20120920
  Receipt Date: 20121024
  Transmission Date: 20130627
  Serious: Yes (Hospitalization)
  Sender: FDA-Public Use
  Company Number: US-GILEAD-2012-0061487

PATIENT
  Age: 54 Year
  Sex: Male

DRUGS (3)
  1. LETAIRIS [Suspect]
     Indication: PULMONARY HYPERTENSION
     Dosage: 10 mg, UNK
     Route: 048
     Dates: start: 20120725
  2. LETAIRIS [Suspect]
     Indication: HEPATIC CIRRHOSIS
  3. LETAIRIS [Suspect]
     Indication: HEPATITIS C

REACTIONS (1)
  - Pulmonary arterial hypertension [Recovered/Resolved]
